FAERS Safety Report 9953225 (Version 1)
Quarter: 2014Q1

REPORT INFORMATION
  Report Type: Spontaneous
  Country: US (occurrence: US)
  Receive Date: 20140304
  Receipt Date: 20140304
  Transmission Date: 20141002
  Serious: No
  Sender: FDA-Public Use
  Company Number: US-AMGEN-USASP2013073076

PATIENT
  Age: 70 Year
  Sex: Female
  Weight: 82.09 kg

DRUGS (14)
  1. ENBREL [Suspect]
     Indication: PRODUCT USED FOR UNKNOWN INDICATION
     Dosage: 50 MG, QWK
     Route: 058
  2. CENTRUM SILVER ADULTS 50+ [Concomitant]
     Dosage: UNK
  3. ATIVAN [Concomitant]
     Dosage: 0.5 MG, UNK
  4. SYNTHROID [Concomitant]
     Dosage: 25 MUG, UNK
  5. NEXIUM                             /01479302/ [Concomitant]
     Dosage: 20 MG, UNK
  6. CRESTOR [Concomitant]
     Dosage: 10 MG, UNK
  7. VITAMIN B12                        /00056201/ [Concomitant]
     Dosage: 1000 MUG, UNK
  8. LEXAPRO [Concomitant]
     Dosage: 5 MG, UNK
  9. VITAMIN D                          /00107901/ [Concomitant]
     Dosage: 400 UNK, UNK
  10. PRESERVISION AREDS [Concomitant]
     Dosage: UNK
  11. ASPIRIN [Concomitant]
     Dosage: 81 MG, UNK
  12. FOLIC ACID [Concomitant]
     Dosage: UNK
  13. LORTAB                             /00607101/ [Concomitant]
     Dosage: 2.5-500
  14. IRON [Concomitant]
     Dosage: UNK

REACTIONS (1)
  - Muscle spasms [Unknown]
